FAERS Safety Report 4871851-4 (Version None)
Quarter: 2006Q1

REPORT INFORMATION
  Report Type: 
  Country: None (occurrence: None)
  Receive Date: 20060104
  Receipt Date: 20050916
  Transmission Date: 20060701
  Serious: Yes (Hospitalization, Disabling)
  Sender: FDA-Public Use
  Company Number: US-MERCK-0509USA02460

PATIENT
  Age: 73 Year
  Sex: Male
  Weight: 100 kg

DRUGS (11)
  1. VIOXX [Suspect]
     Indication: ARTHRITIS
     Route: 048
     Dates: start: 19990601, end: 20021223
  2. NIFEDIPINE [Concomitant]
     Indication: HYPERTENSION
     Route: 065
  3. ZESTRIL [Concomitant]
     Indication: HYPERTENSION
     Route: 065
  4. HYDROCHLOROTHIAZIDE [Concomitant]
     Indication: BLOOD PRESSURE
     Route: 065
  5. XANAX [Concomitant]
     Indication: SLEEP DISORDER
     Route: 065
  6. XANAX [Concomitant]
     Indication: ANXIETY
     Route: 065
  7. AMOXICILLIN [Concomitant]
     Route: 065
  8. PRAVACHOL [Concomitant]
     Route: 065
  9. IMODIUM [Concomitant]
     Route: 065
  10. ACYCLOVIR [Concomitant]
     Route: 065
  11. EFUDEX [Concomitant]
     Route: 065

REACTIONS (17)
  - ACTIVITIES OF DAILY LIVING IMPAIRED [None]
  - AMNESIA [None]
  - ANGER [None]
  - ANXIETY [None]
  - ARTERIOSCLEROSIS [None]
  - BLOOD CHOLESTEROL INCREASED [None]
  - BLOOD POTASSIUM DECREASED [None]
  - BRAIN STEM INFARCTION [None]
  - CEREBROVASCULAR ACCIDENT [None]
  - DEPRESSION [None]
  - DIZZINESS [None]
  - DYSARTHRIA [None]
  - FALL [None]
  - HEARING IMPAIRED [None]
  - INTERNAL INJURY [None]
  - NERVOUS SYSTEM DISORDER [None]
  - NYSTAGMUS [None]
